FAERS Safety Report 9935765 (Version 2)
Quarter: 2014Q1

REPORT INFORMATION
  Report Type: Spontaneous
  Country: JP (occurrence: JP)
  Receive Date: 20140228
  Receipt Date: 20140305
  Transmission Date: 20141002
  Serious: Yes (Hospitalization, Other)
  Sender: FDA-Public Use
  Company Number: PHHY2014JP024907

PATIENT
  Age: 84 Year
  Sex: Female

DRUGS (4)
  1. EXELON PATCH [Suspect]
     Indication: DEMENTIA ALZHEIMER^S TYPE
     Dosage: 1.9 MG/24 HOURS (4.5 MG DAILY)
     Route: 062
     Dates: start: 20130123
  2. EXELON PATCH [Suspect]
     Dosage: 4.6 MG/24 HOURS (9 MG DAILY)
     Route: 062
     Dates: start: 20130213
  3. EXELON PATCH [Suspect]
     Dosage: 6.9 MG/24 HOURS (13.5 MG DAILY)
     Route: 062
     Dates: start: 20130315
  4. EXELON PATCH [Suspect]
     Dosage: 9.5 MG/24 HOURS (18 MG DAILY)
     Route: 062
     Dates: start: 20130412

REACTIONS (3)
  - Fracture [Unknown]
  - Fall [Unknown]
  - Dizziness [Unknown]
